FAERS Safety Report 8996506 (Version 1)
Quarter: 2013Q1

REPORT INFORMATION
  Report Type: Spontaneous
  Country: GB (occurrence: GB)
  Receive Date: 20130104
  Receipt Date: 20130104
  Transmission Date: 20140127
  Serious: Yes (Other)
  Sender: FDA-Public Use
  Company Number: GB-ACCORD-015657

PATIENT
  Age: 22 Year
  Sex: Female
  Weight: 87.7 kg

DRUGS (7)
  1. TOPIRAMATE [Suspect]
     Indication: PRODUCT USED FOR UNKNOWN INDICATION
     Dates: start: 20120810
  2. TOPAMAX [Concomitant]
  3. FOLIC ACID [Concomitant]
     Dates: start: 20120928
  4. NAPROXEN [Concomitant]
     Dates: start: 20121009, end: 20121016
  5. DOCUSATE SODIUM [Concomitant]
     Dates: start: 20121129
  6. SERTRALINE [Concomitant]
     Dates: start: 20120810
  7. TEGRETOL [Concomitant]
     Dates: start: 20120810

REACTIONS (2)
  - Pruritus generalised [Recovered/Resolved]
  - Product substitution issue [Unknown]
